FAERS Safety Report 8582038-6 (Version None)
Quarter: 2012Q3

REPORT INFORMATION
  Report Type: 
  Country: None (occurrence: None)
  Receive Date: 20120809
  Receipt Date: 20120802
  Transmission Date: 20120928
  Serious: Yes (Hospitalization, Other)
  Sender: FDA-Public Use
  Company Number: GB-PFIZER INC-2012188117

PATIENT
  Age: 63 Year
  Sex: Male

DRUGS (1)
  1. SUTENT [Suspect]
     Indication: RENAL CANCER METASTATIC
     Dosage: 100 MG DAILY
     Route: 048
     Dates: start: 20120719, end: 20120731

REACTIONS (7)
  - OVERDOSE [None]
  - MALAISE [None]
  - EYE HAEMORRHAGE [None]
  - CHILLS [None]
  - TREMOR [None]
  - VOMITING [None]
  - LOSS OF CONSCIOUSNESS [None]
